FAERS Safety Report 13837994 (Version 9)
Quarter: 2018Q4

REPORT INFORMATION
  Report Type: Report from Study
  Country: US (occurrence: US)
  Receive Date: 20170807
  Receipt Date: 20181011
  Transmission Date: 20190204
  Serious: Yes (Other)
  Sender: FDA-Public Use
  Company Number: US-TEVA-795054ACC

PATIENT
  Age: 63 Year
  Sex: Male

DRUGS (6)
  1. RITUXIMAB. [Suspect]
     Active Substance: RITUXIMAB
     Indication: CHRONIC LYMPHOCYTIC LEUKAEMIA
     Route: 065
  2. LISINOPRIL. [Concomitant]
     Active Substance: LISINOPRIL
     Indication: HYPERTENSION
     Dosage: 10 MILLIGRAM DAILY;
     Route: 048
  3. IBRUTINIB [Suspect]
     Active Substance: IBRUTINIB
     Indication: CHRONIC LYMPHOCYTIC LEUKAEMIA
     Dosage: 420 MILLIGRAM DAILY;
     Route: 048
     Dates: start: 20160922
  4. BABY ASPIRIN [Concomitant]
     Active Substance: ASPIRIN
     Indication: PRODUCT USED FOR UNKNOWN INDICATION
     Dosage: 81 MILLIGRAM DAILY;
     Route: 048
  5. IBRUTINIB [Suspect]
     Active Substance: IBRUTINIB
     Dosage: 420 MILLIGRAM DAILY;
     Route: 048
     Dates: start: 20180430
  6. BENDAMUSTINE HYDROCHLORIDE. [Suspect]
     Active Substance: BENDAMUSTINE HYDROCHLORIDE
     Indication: CHRONIC LYMPHOCYTIC LEUKAEMIA
     Dosage: UNK UNK, CYCLIC
     Route: 042

REACTIONS (9)
  - Red blood cell count decreased [Recovered/Resolved]
  - Arthralgia [Not Recovered/Not Resolved]
  - Ear infection [Not Recovered/Not Resolved]
  - Skin cancer [Not Recovered/Not Resolved]
  - Neutrophil count abnormal [Recovered/Resolved]
  - White blood cell count decreased [Recovered/Resolved]
  - Abnormal dreams [Not Recovered/Not Resolved]
  - Lymphocyte count increased [Recovering/Resolving]
  - Lymphadenopathy [Recovering/Resolving]

NARRATIVE: CASE EVENT DATE: 2017
